FAERS Safety Report 19938276 (Version 1)
Quarter: 2021Q4

REPORT INFORMATION
  Report Type: Other
  Country: US (occurrence: US)
  Receive Date: 20211011
  Receipt Date: 20211011
  Transmission Date: 20220303
  Serious: Yes (Death)
  Sender: FDA-Public Use
  Company Number: US-ROCHE-2874640

PATIENT
  Age: 44 Year
  Sex: Male
  Weight: 117 kg

DRUGS (2)
  1. OCREVUS [Suspect]
     Active Substance: OCRELIZUMAB
     Indication: Primary progressive multiple sclerosis
     Route: 042
     Dates: start: 20191202, end: 20210223
  2. PREDNISONE [Suspect]
     Active Substance: PREDNISONE
     Indication: Multiple sclerosis
     Dosage: DAILY
     Route: 048
     Dates: start: 20210504, end: 20210623

REACTIONS (4)
  - Respiratory tract infection [Fatal]
  - Diabetes mellitus [Fatal]
  - Accidental overdose [Fatal]
  - Product prescribing error [Unknown]

NARRATIVE: CASE EVENT DATE: 20210623
